FAERS Safety Report 8097702-5 (Version None)
Quarter: 2012Q1

REPORT INFORMATION
  Report Type: 
  Country: None (occurrence: None)
  Receive Date: 20120128
  Receipt Date: 20110714
  Transmission Date: 20120608
  Serious: No
  Sender: FDA-Public Use
  Company Number: US-ABBOTT-11P-163-0838985-00

PATIENT
  Age: 44 Year
  Sex: Female

DRUGS (2)
  1. UNKNOWN MEDICATIONS [Concomitant]
     Indication: PRODUCT USED FOR UNKNOWN INDICATION
  2. HUMIRA [Suspect]
     Indication: RHEUMATOID ARTHRITIS

REACTIONS (4)
  - WOUND DRAINAGE [None]
  - IMPAIRED HEALING [None]
  - OPEN WOUND [None]
  - OROPHARYNGEAL PAIN [None]
